FAERS Safety Report 9980832 (Version 1)
Quarter: 2014Q1

REPORT INFORMATION
  Report Type: Spontaneous
  Country: US (occurrence: None)
  Receive Date: 20140306
  Receipt Date: 20140306
  Transmission Date: 20141002
  Serious: Yes (Death)
  Sender: FDA-Public Use
  Company Number: None

PATIENT
  Age: 81 Year
  Sex: Female

DRUGS (1)
  1. INVANZE [Suspect]
     Indication: URINARY TRACT INFECTION
     Dates: start: 20140302, end: 20140304

REACTIONS (2)
  - Cardiac arrest [None]
  - Acute hepatic failure [None]
